FAERS Safety Report 15065620 (Version 7)
Quarter: 2020Q1

REPORT INFORMATION
  Report Type: Spontaneous
  Country: US (occurrence: US)
  Receive Date: 20180626
  Receipt Date: 20200214
  Transmission Date: 20200409
  Serious: Yes (Other)
  Sender: FDA-Public Use
  Company Number: US-PFIZER INC-2018252440

PATIENT
  Age: 67 Year
  Sex: Female
  Weight: 101 kg

DRUGS (7)
  1. LYRICA [Suspect]
     Active Substance: PREGABALIN
     Indication: PAIN IN EXTREMITY
     Dosage: 50 MG, 2X/DAY
     Route: 048
     Dates: start: 20180520
  2. REPAGLINIDE. [Concomitant]
     Active Substance: REPAGLINIDE
     Dosage: UNK, [2 MG WITH EACH MEAL]
     Dates: start: 201908
  3. LANSOPRAZOLE. [Concomitant]
     Active Substance: LANSOPRAZOLE
     Indication: GASTROOESOPHAGEAL REFLUX DISEASE
     Dosage: 30 MG, 2X/DAY
  4. LYRICA [Suspect]
     Active Substance: PREGABALIN
     Indication: NEUROPATHY PERIPHERAL
     Dosage: 50 MG, 3X/DAY
     Route: 048
     Dates: start: 20180222
  5. LYRICA [Suspect]
     Active Substance: PREGABALIN
     Indication: NEURALGIA
  6. METFORMIN [Concomitant]
     Active Substance: METFORMIN HYDROCHLORIDE
     Indication: TYPE 2 DIABETES MELLITUS
     Dosage: UNK
     Dates: start: 20180925, end: 20190213
  7. LYRICA [Suspect]
     Active Substance: PREGABALIN
     Indication: DIABETIC NEUROPATHY
     Dosage: 50 MG, 2X/WEEK
     Route: 048
     Dates: start: 2017

REACTIONS (5)
  - Neuropathy peripheral [Not Recovered/Not Resolved]
  - Condition aggravated [Not Recovered/Not Resolved]
  - Hunger [Not Recovered/Not Resolved]
  - Weight increased [Not Recovered/Not Resolved]
  - Pain in extremity [Not Recovered/Not Resolved]

NARRATIVE: CASE EVENT DATE: 201805
